FAERS Safety Report 18762937 (Version 1)
Quarter: 2021Q1

REPORT INFORMATION
  Report Type: Spontaneous
  Country: US (occurrence: US)
  Receive Date: 20210120
  Receipt Date: 20210120
  Transmission Date: 20210419
  Serious: No
  Sender: FDA-Public Use
  Company Number: None

PATIENT
  Age: 50 Year
  Sex: Female
  Weight: 64.3 kg

DRUGS (12)
  1. CETIRIZINE [Concomitant]
     Active Substance: CETIRIZINE HYDROCHLORIDE
  2. TYLENOL ES 500MG [Concomitant]
  3. LEVOTHYROXINE 88MCG [Concomitant]
     Active Substance: LEVOTHYROXINE
  4. CAPECITABINE. [Suspect]
     Active Substance: CAPECITABINE
     Indication: COLON CANCER
     Route: 048
     Dates: start: 20200922
  5. ADVIL 200MG [Concomitant]
  6. PEPCID [Concomitant]
     Active Substance: FAMOTIDINE
  7. METAMUCIL [Concomitant]
     Active Substance: PLANTAGO SEED
  8. ACYCLOVIR. [Concomitant]
     Active Substance: ACYCLOVIR
  9. TEMAZEPAM 15MG [Concomitant]
  10. ONDANSETRON 8MG [Concomitant]
     Active Substance: ONDANSETRON
  11. VITAMIN D 1000U [Concomitant]
  12. FLONASE ALLERGY 50MCG/ACT [Concomitant]

REACTIONS (2)
  - Paraesthesia [None]
  - Temperature intolerance [None]

NARRATIVE: CASE EVENT DATE: 20210120
